FAERS Safety Report 10214885 (Version 1)
Quarter: 2014Q2

REPORT INFORMATION
  Report Type: Spontaneous
  Country: CN (occurrence: CN)
  Receive Date: 20140603
  Receipt Date: 20140603
  Transmission Date: 20141212
  Serious: Yes (Hospitalization)
  Sender: FDA-Public Use
  Company Number: CN-ABBVIE-14K-035-1244159-00

PATIENT
  Sex: Female

DRUGS (1)
  1. ENANTONE [Suspect]
     Indication: PRECOCIOUS PUBERTY
     Route: 058

REACTIONS (2)
  - Generalised erythema [Recovering/Resolving]
  - Injection site reaction [Recovering/Resolving]
